FAERS Safety Report 13750027 (Version 1)
Quarter: 2017Q3

REPORT INFORMATION
  Report Type: Spontaneous
  Country: US (occurrence: US)
  Receive Date: 20170713
  Receipt Date: 20170713
  Transmission Date: 20171127
  Serious: No
  Sender: FDA-Public Use
  Company Number: US-ASTELLAS-2016US047539

PATIENT
  Sex: Female

DRUGS (1)
  1. MYRBETRIQ [Suspect]
     Active Substance: MIRABEGRON
     Indication: PRODUCT USED FOR UNKNOWN INDICATION
     Dosage: UNK, UNKNOWN FREQ.
     Route: 065

REACTIONS (6)
  - Urinary tract infection [Unknown]
  - Hypoacusis [Unknown]
  - Pollakiuria [Unknown]
  - Dementia [Unknown]
  - Dementia Alzheimer^s type [Unknown]
  - Renal disorder [Unknown]
